FAERS Safety Report 5892490-2 (Version None)
Quarter: 2008Q3

REPORT INFORMATION
  Report Type: 
  Country: None (occurrence: None)
  Receive Date: 20080919
  Receipt Date: 20080909
  Transmission Date: 20090109
  Serious: Yes (Hospitalization)
  Sender: FDA-Public Use
  Company Number: 2008BI020885

PATIENT
  Age: 40 Year
  Sex: Female

DRUGS (1)
  1. TYSABRI [Suspect]
     Indication: CROHN'S DISEASE
     Dosage: 300 MG; QM; IV
     Route: 042
     Dates: start: 20080606, end: 20080804

REACTIONS (2)
  - CONDITION AGGRAVATED [None]
  - CROHN'S DISEASE [None]
